FAERS Safety Report 23809217 (Version 1)
Quarter: 2024Q2

REPORT INFORMATION
  Report Type: Spontaneous
  Country: US (occurrence: None)
  Receive Date: 20240501
  Receipt Date: 20240501
  Transmission Date: 20240716
  Serious: Yes (Hospitalization)
  Sender: FDA-Public Use
  Company Number: None

PATIENT
  Age: 66 Year
  Sex: Male
  Weight: 83 kg

DRUGS (2)
  1. PACLITAXEL [Suspect]
     Active Substance: PACLITAXEL
     Indication: Oesophageal adenocarcinoma
     Route: 042
     Dates: start: 20240425, end: 20240425
  2. CARBOPLATIN [Suspect]
     Active Substance: CARBOPLATIN

REACTIONS (5)
  - Abdominal pain [None]
  - Unresponsive to stimuli [None]
  - Vomiting [None]
  - Hypotension [None]
  - Seizure [None]

NARRATIVE: CASE EVENT DATE: 20240425
